FAERS Safety Report 14232295 (Version 1)
Quarter: 2017Q4

REPORT INFORMATION
  Report Type: Spontaneous
  Country: US (occurrence: US)
  Receive Date: 20171128
  Receipt Date: 20171128
  Transmission Date: 20180321
  Serious: Yes (Hospitalization)
  Sender: FDA-Public Use
  Company Number: US-PFIZER INC-2017509139

PATIENT
  Age: 90 Year
  Sex: Male
  Weight: 49.9 kg

DRUGS (1)
  1. PROTONIX [Suspect]
     Active Substance: PANTOPRAZOLE SODIUM
     Dosage: UNK
     Dates: start: 20171122, end: 20171123

REACTIONS (2)
  - Complication associated with device [Unknown]
  - Product quality issue [Unknown]

NARRATIVE: CASE EVENT DATE: 201711
